FAERS Safety Report 12797207 (Version 1)
Quarter: 2016Q3

REPORT INFORMATION
  Report Type: Spontaneous
  Country: US (occurrence: US)
  Receive Date: 20160930
  Receipt Date: 20160930
  Transmission Date: 20161109
  Serious: No
  Sender: FDA-Public Use
  Company Number: US-ELI_LILLY_AND_COMPANY-US201609007234

PATIENT
  Sex: Male
  Weight: 147.4 kg

DRUGS (3)
  1. LISINOPRIL. [Concomitant]
     Active Substance: LISINOPRIL
     Indication: HYPERTENSION
     Dosage: UNK, UNKNOWN
     Route: 065
  2. CYMBALTA [Suspect]
     Active Substance: DULOXETINE HYDROCHLORIDE
     Indication: NEURALGIA
     Dosage: UNK UNK, UNKNOWN
     Route: 065
     Dates: end: 201607
  3. LYRICA [Concomitant]
     Active Substance: PREGABALIN
     Indication: POLYNEUROPATHY
     Dosage: 50 MG, TID
     Route: 048
     Dates: start: 201609

REACTIONS (5)
  - Weight increased [Unknown]
  - Peripheral swelling [Unknown]
  - Mobility decreased [Unknown]
  - Irritability [Unknown]
  - Pain [Unknown]
